FAERS Safety Report 9892390 (Version 1)
Quarter: 2014Q1

REPORT INFORMATION
  Report Type: Spontaneous
  Country: CA (occurrence: CA)
  Receive Date: 20140212
  Receipt Date: 20140212
  Transmission Date: 20141002
  Serious: Yes (Life-Threatening, Hospitalization)
  Sender: FDA-Public Use
  Company Number: CA-TEVA-462155USA

PATIENT
  Age: 59 Year
  Sex: Female
  Weight: 102.15 kg

DRUGS (16)
  1. HYDROCHLOROTHIAZIDE [Suspect]
     Dosage: 25 MILLIGRAM DAILY;
     Route: 065
  2. JANUVIA [Suspect]
     Dosage: 100 MILLIGRAM DAILY;
     Route: 065
  3. ALLOPURINOL [Concomitant]
  4. BETAHISTINE [Concomitant]
  5. CRESTOR [Concomitant]
  6. DICETEL [Concomitant]
  7. FUROSEMIDE [Concomitant]
  8. GLICLAZIDE MR [Concomitant]
  9. METOPROLOL [Concomitant]
  10. PLAVIX [Concomitant]
  11. POTASSIUM [Concomitant]
  12. QUININE [Concomitant]
  13. RABEPRAZOLE [Concomitant]
  14. SPIRONOLACTONE [Concomitant]
  15. SYNTHROID [Concomitant]
  16. VITAMIN B12 [Concomitant]

REACTIONS (7)
  - Abdominal discomfort [Recovered/Resolved with Sequelae]
  - Ageusia [Recovered/Resolved with Sequelae]
  - Asthenia [Recovered/Resolved with Sequelae]
  - Blood potassium decreased [Recovered/Resolved with Sequelae]
  - Oesophageal pain [Recovered/Resolved with Sequelae]
  - Oral discomfort [Recovered/Resolved with Sequelae]
  - Swollen tongue [Recovered/Resolved with Sequelae]
